FAERS Safety Report 21413650 (Version 3)
Quarter: 2023Q1

REPORT INFORMATION
  Report Type: Spontaneous
  Country: JP (occurrence: JP)
  Receive Date: 20221006
  Receipt Date: 20230105
  Transmission Date: 20230417
  Serious: Yes (Life-Threatening, Hospitalization, Disabling, Other)
  Sender: FDA-Public Use
  Company Number: JP-MSD-M2022-39858

PATIENT
  Age: 77 Year
  Sex: Male
  Weight: 64 kg

DRUGS (12)
  1. KEYTRUDA [Suspect]
     Active Substance: PEMBROLIZUMAB
     Indication: Head and neck cancer stage IV
     Dosage: 200 MILLIGRAM, Q3W
     Route: 041
     Dates: start: 20210513, end: 20210627
  2. KEYTRUDA [Suspect]
     Active Substance: PEMBROLIZUMAB
     Dosage: 200 MILLIGRAM, Q3W
     Route: 041
     Dates: start: 20220513, end: 20220719
  3. CARBOPLATIN [Suspect]
     Active Substance: CARBOPLATIN
     Indication: Head and neck cancer stage IV
     Dosage: AUC5, Q3W
     Route: 041
     Dates: start: 20220719, end: 20220719
  4. FLUOROURACIL [Suspect]
     Active Substance: FLUOROURACIL
     Indication: Head and neck cancer stage IV
     Dosage: 1000 MILLIGRAM, 4-DAY CONTINUOUS INTRAVENOUS INFUSION ADMINISTERED AT 3-WEEK INTERVALS
     Route: 041
     Dates: start: 20220719, end: 20220722
  5. VEKLURY [Suspect]
     Active Substance: REMDESIVIR
     Indication: Prophylaxis
     Dosage: UNK
     Route: 065
  6. LOXOPROFEN SODIUM [Concomitant]
     Active Substance: LOXOPROFEN SODIUM
     Indication: Pain
     Dosage: 0.6 GRAM, TID
     Route: 048
     Dates: start: 20220512
  7. NEXIUM [Concomitant]
     Active Substance: ESOMEPRAZOLE MAGNESIUM
     Indication: Mucosal disorder
     Dosage: 20 MILLIGRAM, QD
     Dates: start: 20210915
  8. MIYA-BM [Concomitant]
     Active Substance: CLOSTRIDIUM BUTYRICUM SPORES STRAIN M-55
     Dosage: 1 GRAM, TID
     Dates: start: 20210915
  9. DESYREL [Concomitant]
     Active Substance: TRAZODONE HYDROCHLORIDE
     Indication: Insomnia
     Dosage: 25 MILLIGRAM, QD
     Dates: start: 20210915
  10. LUNESTA [Concomitant]
     Active Substance: ESZOPICLONE
     Indication: Insomnia
     Dosage: 1 MILLIGRAM, QD
     Dates: start: 20210915
  11. RACOL [NUTRIENTS NOS] [Concomitant]
     Indication: Gastric fistula
     Dosage: 300 MILLILITER, TID
     Dates: start: 20211222
  12. ENORAS [Concomitant]
     Indication: Gastric fistula
     Dosage: 187.5 MILLILITER, TID
     Dates: start: 20220124

REACTIONS (6)
  - Septic shock [Recovered/Resolved with Sequelae]
  - Liver disorder [Recovered/Resolved]
  - Immune-mediated cholangitis [Not Recovered/Not Resolved]
  - Hypothyroidism [Not Recovered/Not Resolved]
  - Immune-mediated hepatitis [Not Recovered/Not Resolved]
  - COVID-19 [Unknown]

NARRATIVE: CASE EVENT DATE: 20220715
